APPROVED DRUG PRODUCT: FLUOROMETHOLONE
Active Ingredient: FLUOROMETHOLONE
Strength: 0.1%
Dosage Form/Route: SUSPENSION/DROPS;OPHTHALMIC
Application: A218819 | Product #001 | TE Code: AB
Applicant: DIFGEN PHARMACEUTICALS LLC
Approved: Feb 12, 2026 | RLD: No | RS: No | Type: RX